FAERS Safety Report 16847752 (Version 1)
Quarter: 2019Q3

REPORT INFORMATION
  Report Type: Other
  Country: US (occurrence: US)
  Receive Date: 20190924
  Receipt Date: 20190924
  Transmission Date: 20191005
  Serious: No
  Sender: FDA-Public Use
  Company Number: US-ACORDA-ACO_159488_2019

PATIENT
  Sex: Male
  Weight: 89.8 kg

DRUGS (1)
  1. INBRIJA [Suspect]
     Active Substance: LEVODOPA
     Indication: PARKINSON^S DISEASE
     Dosage: 84 MG (42 MG, 2 CAPSULES DAILY) PRN
     Dates: start: 20190501, end: 20190605

REACTIONS (4)
  - Device defective [Unknown]
  - Wrong technique in device usage process [Unknown]
  - Cough [Unknown]
  - Device issue [Unknown]
